FAERS Safety Report 7969683-3 (Version None)
Quarter: 2011Q4

REPORT INFORMATION
  Report Type: 
  Country: None (occurrence: None)
  Receive Date: 20111208
  Receipt Date: 20111121
  Transmission Date: 20120403
  Serious: Yes (Other)
  Sender: FDA-Public Use
  Company Number: 2011P1011824

PATIENT
  Age: 40 Year
  Sex: Female
  Weight: 61.2356 kg

DRUGS (7)
  1. PRENATAL MULTIVITAMIN AND IRON [Concomitant]
  2. ACETAZOLAMIDE [Suspect]
     Indication: VENOUS PRESSURE
     Dosage: 250 MG;BID;PO
     Route: 048
     Dates: start: 20111007
  3. LEVOTHYROXINE SODIUM [Concomitant]
  4. PRAVASTATIN [Concomitant]
  5. NUVIGIL [Suspect]
     Dosage: 150 MG;QD;PO, 250 MG;QD;PO
     Route: 048
     Dates: start: 20111013, end: 20111030
  6. NUVIGIL [Suspect]
     Dosage: 150 MG;QD;PO, 250 MG;QD;PO
     Route: 048
     Dates: start: 20111031
  7. WARFARIN SODIUM [Concomitant]

REACTIONS (1)
  - DYSPNOEA [None]
